FAERS Safety Report 4932210-9 (Version None)
Quarter: 2006Q1

REPORT INFORMATION
  Report Type: 
  Country: None (occurrence: None)
  Receive Date: 20060228
  Receipt Date: 20060213
  Transmission Date: 20060701
  Serious: Yes (Death)
  Sender: FDA-Public Use
  Company Number: 2006-00317

PATIENT
  Age: 67 Year
  Sex: Female
  Weight: 68 kg

DRUGS (3)
  1. VELCADE [Suspect]
     Indication: MULTIPLE MYELOMA
     Dosage: 2.00 MG, INTRAVENOUS
     Route: 042
     Dates: start: 20051128, end: 20051208
  2. KEVATRIL (GRANISETRON HYDROCHLORIDE) [Concomitant]
  3. CLODRONIC ACID (CLODRONIC ACID) [Concomitant]

REACTIONS (1)
  - SUDDEN DEATH [None]
